FAERS Safety Report 13559135 (Version 1)
Quarter: 2017Q2

REPORT INFORMATION
  Report Type: Spontaneous
  Country: US (occurrence: US)
  Receive Date: 20170518
  Receipt Date: 20170518
  Transmission Date: 20170830
  Serious: Yes (Other)
  Sender: FDA-Public Use
  Company Number: US-CELGENEUS-USA-20170501978

PATIENT

DRUGS (1)
  1. OTEZLA [Suspect]
     Active Substance: APREMILAST
     Indication: PSORIASIS
     Route: 048

REACTIONS (6)
  - Viral infection [Unknown]
  - Fungal infection [Unknown]
  - Varicella zoster virus infection [Unknown]
  - Herpes simplex [Unknown]
  - Ophthalmic herpes zoster [Unknown]
  - Bacterial infection [Unknown]
